FAERS Safety Report 13807651 (Version 1)
Quarter: 2017Q3

REPORT INFORMATION
  Report Type: Spontaneous
  Country: FR (occurrence: FR)
  Receive Date: 20170728
  Receipt Date: 20170728
  Transmission Date: 20171127
  Serious: Yes (Hospitalization, Congenital Anomaly)
  Sender: FDA-Public Use
  Company Number: FR-SA-2017SA133467

PATIENT
  Age: 0 Day
  Sex: Female
  Weight: 1.76 kg

DRUGS (4)
  1. LOVENOX [Suspect]
     Active Substance: ENOXAPARIN SODIUM
     Route: 064
     Dates: start: 201109
  2. LOVENOX [Suspect]
     Active Substance: ENOXAPARIN SODIUM
     Route: 064
  3. HUMIRA [Suspect]
     Active Substance: ADALIMUMAB
     Route: 064
     Dates: start: 200907, end: 20111110
  4. VENTOLINE [Suspect]
     Active Substance: ALBUTEROL
     Route: 064

REACTIONS (3)
  - Foetal exposure during pregnancy [Unknown]
  - Foetal malnutrition [Recovered/Resolved]
  - Premature baby [Recovered/Resolved]

NARRATIVE: CASE EVENT DATE: 201111
